FAERS Safety Report 7331002-3 (Version None)
Quarter: 2011Q1

REPORT INFORMATION
  Report Type: 
  Country: None (occurrence: None)
  Receive Date: 20110304
  Receipt Date: 20110223
  Transmission Date: 20110831
  Serious: Yes (Hospitalization)
  Sender: FDA-Public Use
  Company Number: US-AMGEN-USASP2011000487

PATIENT
  Age: 55 Year
  Sex: Female

DRUGS (3)
  1. METHOTREXATE [Concomitant]
  2. PLAQUENIL [Concomitant]
  3. ENBREL [Suspect]
     Indication: RHEUMATOID ARTHRITIS
     Dosage: 50 MG, QWK
     Route: 058
     Dates: start: 20100928

REACTIONS (11)
  - ASTHENIA [None]
  - LETHARGY [None]
  - SLE ARTHRITIS [None]
  - DEHYDRATION [None]
  - EYE SWELLING [None]
  - SYSTEMIC LUPUS ERYTHEMATOSUS [None]
  - DRUG INTOLERANCE [None]
  - DIARRHOEA [None]
  - OEDEMA PERIPHERAL [None]
  - VOMITING [None]
  - BRONCHITIS [None]
